FAERS Safety Report 7365666-5 (Version None)
Quarter: 2011Q1

REPORT INFORMATION
  Report Type: 
  Country: None (occurrence: None)
  Receive Date: 20110322
  Receipt Date: 20110311
  Transmission Date: 20110831
  Serious: Yes (Other)
  Sender: FDA-Public Use
  Company Number: AR-AMGEN-ARGSP2011011761

PATIENT
  Age: 29 Year
  Sex: Female
  Weight: 48 kg

DRUGS (2)
  1. ENBREL [Suspect]
     Indication: RHEUMATOID ARTHRITIS
     Dosage: 50 MG, WEEKLY
     Dates: start: 20020101, end: 20101001
  2. DICLOFENAC [Concomitant]
     Dosage: UNK

REACTIONS (3)
  - DEPRESSION [None]
  - PANIC ATTACK [None]
  - DRUG INEFFECTIVE [None]
